FAERS Safety Report 22532077 (Version 1)
Quarter: 2023Q2

REPORT INFORMATION
  Report Type: Spontaneous
  Country: US (occurrence: US)
  Receive Date: 20230607
  Receipt Date: 20230607
  Transmission Date: 20230722
  Serious: Yes (Other)
  Sender: FDA-Public Use
  Company Number: US-BAYER-2023A077027

PATIENT

DRUGS (2)
  1. VITRAKVI [Suspect]
     Active Substance: LAROTRECTINIB
     Indication: Pancreatic carcinoma
     Dosage: 100 MG, BID
     Route: 048
  2. VITRAKVI [Suspect]
     Active Substance: LAROTRECTINIB
     Indication: Pancreatic carcinoma
     Dosage: 125 MG, QD (50 MG A.M. AND 75 MG P.M)

REACTIONS (1)
  - Neuropathy peripheral [Recovered/Resolved with Sequelae]
